FAERS Safety Report 4898768-3 (Version None)
Quarter: 2006Q1

REPORT INFORMATION
  Report Type: 
  Country: None (occurrence: None)
  Receive Date: 20060202
  Receipt Date: 20050915
  Transmission Date: 20060701
  Serious: Yes (Hospitalization)
  Sender: FDA-Public Use
  Company Number: FRWYE982916SEP05

PATIENT
  Sex: Male

DRUGS (5)
  1. ENBREL [Suspect]
     Indication: ANKYLOSING SPONDYLITIS
     Route: 058
     Dates: start: 20040101
  2. DISOPYRAMIDE [Suspect]
     Indication: ARRHYTHMIA
     Dosage: UNKNOWN
     Route: 048
     Dates: end: 20050701
  3. INDOCID [Concomitant]
     Dates: end: 20050713
  4. COVERSYL [Concomitant]
  5. MOPRAL [Concomitant]

REACTIONS (8)
  - ARRHYTHMIA [None]
  - BUNDLE BRANCH BLOCK LEFT [None]
  - CEREBRAL ARTERY OCCLUSION [None]
  - DRUG INEFFECTIVE [None]
  - EMBOLIC STROKE [None]
  - ISCHAEMIC STROKE [None]
  - SUPRAVENTRICULAR TACHYCARDIA [None]
  - VENTRICULAR EXTRASYSTOLES [None]
